FAERS Safety Report 7078756-1 (Version None)
Quarter: 2010Q4

REPORT INFORMATION
  Report Type: 
  Country: None (occurrence: None)
  Receive Date: 20101101
  Receipt Date: 20101101
  Transmission Date: 20110411
  Serious: No
  Sender: FDA-Public Use
  Company Number: None

PATIENT
  Age: 53 Year
  Sex: Female
  Weight: 90.7194 kg

DRUGS (4)
  1. PREMPRO [Suspect]
     Indication: HOT FLUSH
     Dosage: 2 PER DAY PO
     Route: 048
     Dates: start: 20011101, end: 20041009
  2. PREMPRO [Suspect]
     Indication: MENOPAUSE
     Dosage: 2 PER DAY PO
     Route: 048
     Dates: start: 20011101, end: 20041009
  3. PREMARIN [Suspect]
     Indication: HOT FLUSH
     Dosage: 2 PER DAY PO
     Route: 048
     Dates: start: 20041009, end: 20051116
  4. PREMARIN [Suspect]
     Indication: MENOPAUSE
     Dosage: 2 PER DAY PO
     Route: 048
     Dates: start: 20041009, end: 20051116

REACTIONS (3)
  - BREAST CANCER FEMALE [None]
  - OESTROGEN RECEPTOR ASSAY POSITIVE [None]
  - PROGESTERONE RECEPTOR ASSAY POSITIVE [None]
